FAERS Safety Report 13624470 (Version 4)
Quarter: 2017Q3

REPORT INFORMATION
  Report Type: Spontaneous
  Country: US (occurrence: US)
  Receive Date: 20170608
  Receipt Date: 20170811
  Transmission Date: 20171127
  Serious: Yes (Hospitalization)
  Sender: FDA-Public Use
  Company Number: US-BEH-2017081082

PATIENT
  Age: 50 Year
  Sex: Male
  Weight: 65.76 kg

DRUGS (40)
  1. CEPHALEXIN                         /00145501/ [Concomitant]
     Active Substance: CEPHALEXIN
  2. RIFABUTIN. [Concomitant]
     Active Substance: RIFABUTIN
  3. SPIRIVA [Concomitant]
     Active Substance: TIOTROPIUM BROMIDE MONOHYDRATE
  4. AVELOX [Concomitant]
     Active Substance: MOXIFLOXACIN HYDROCHLORIDE
  5. EPIPEN [Concomitant]
     Active Substance: EPINEPHRINE
  6. GABAPENTIN. [Concomitant]
     Active Substance: GABAPENTIN
  7. TESSALON [Concomitant]
     Active Substance: BENZONATATE
  8. PREDNISONE. [Concomitant]
     Active Substance: PREDNISONE
  9. CLOFAZIMINE [Concomitant]
     Active Substance: CLOFAZIMINE
  10. CATHFLO ACTIVASE [Concomitant]
     Active Substance: ALTEPLASE
  11. DIPHENHYDRAMINE. [Concomitant]
     Active Substance: DIPHENHYDRAMINE
  12. XANAX [Concomitant]
     Active Substance: ALPRAZOLAM
  13. AMIKACIN [Concomitant]
     Active Substance: AMIKACIN
  14. TRAMADOL. [Concomitant]
     Active Substance: TRAMADOL
  15. AZITHROMYCIN ANHYDROUS. [Concomitant]
     Active Substance: AZITHROMYCIN ANHYDROUS
  16. OXYGEN. [Concomitant]
     Active Substance: OXYGEN
  17. DELSYM [Concomitant]
     Active Substance: DEXTROMETHORPHAN
  18. MORPHINE [Concomitant]
     Active Substance: MORPHINE
  19. VITAMIN B6 [Concomitant]
     Active Substance: PYRIDOXINE HYDROCHLORIDE
  20. IBUPROFEN. [Concomitant]
     Active Substance: IBUPROFEN
  21. PROBIOTIC                          /06395501/ [Concomitant]
     Active Substance: BIFIDOBACTERIUM ANIMALIS LACTIS
  22. LMX                                /00033401/ [Concomitant]
  23. VITAMIN D3 [Concomitant]
     Active Substance: CHOLECALCIFEROL
  24. XOPENEX [Concomitant]
     Active Substance: LEVALBUTEROL HYDROCHLORIDE
  25. PANTOPRAZOLE [Concomitant]
     Active Substance: PANTOPRAZOLE
  26. STERILE WATER [Concomitant]
     Active Substance: WATER
  27. FLUTICASONE FUROATE [Concomitant]
     Active Substance: FLUTICASONE FUROATE
  28. ZEMAIRA [Suspect]
     Active Substance: .ALPHA.1-PROTEINASE INHIBITOR HUMAN
     Indication: ALPHA-1 ANTI-TRYPSIN DEFICIENCY
     Dosage: 60 MG/KG, UNK
     Route: 042
     Dates: start: 20160113
  29. ZEMAIRA [Suspect]
     Active Substance: .ALPHA.1-PROTEINASE INHIBITOR HUMAN
     Dosage: UNK
     Route: 042
     Dates: start: 20160519
  30. DALIRESP [Concomitant]
     Active Substance: ROFLUMILAST
  31. FISH OIL W/VITAMIN D NOS [Concomitant]
  32. ALBUTEROL                          /00139501/ [Concomitant]
     Active Substance: ALBUTEROL
  33. HEPARIN [Concomitant]
     Active Substance: HEPARIN SODIUM
  34. SODIUM CHLORIDE. [Concomitant]
     Active Substance: SODIUM CHLORIDE
  35. ZEMAIRA [Suspect]
     Active Substance: .ALPHA.1-PROTEINASE INHIBITOR HUMAN
     Dosage: UNK
     Route: 042
  36. ZEMAIRA [Suspect]
     Active Substance: .ALPHA.1-PROTEINASE INHIBITOR HUMAN
     Dosage: UNK
     Route: 042
  37. VITAMIN B12 [Concomitant]
     Active Substance: CYANOCOBALAMIN
  38. ONDANSETRON [Concomitant]
     Active Substance: ONDANSETRON
  39. HYDROCODONE [Concomitant]
     Active Substance: HYDROCODONE
  40. ANIDULAFUNGIN [Concomitant]
     Active Substance: ANIDULAFUNGIN

REACTIONS (5)
  - Haemoptysis [Unknown]
  - Fatigue [Unknown]
  - Haemoptysis [Recovered/Resolved]
  - Aspergillus infection [Recovering/Resolving]
  - Haemoptysis [Not Recovered/Not Resolved]

NARRATIVE: CASE EVENT DATE: 20170528
